FAERS Safety Report 19487821 (Version 2)
Quarter: 2022Q1

REPORT INFORMATION
  Report Type: Spontaneous
  Country: FR (occurrence: FR)
  Receive Date: 20210702
  Receipt Date: 20220224
  Transmission Date: 20220423
  Serious: Yes (Life-Threatening)
  Sender: FDA-Public Use
  Company Number: None

PATIENT
  Age: 58 Year
  Sex: Male
  Weight: 72 kg

DRUGS (6)
  1. LYRICA [Interacting]
     Active Substance: PREGABALIN
     Indication: Epilepsy
     Dosage: 2 DF, 1X/DAY
     Route: 048
     Dates: end: 20210410
  2. VORICONAZOLE [Interacting]
     Active Substance: VORICONAZOLE
     Indication: Pneumonia
     Dosage: UNK
     Route: 042
     Dates: start: 20210330, end: 20210407
  3. ERYTHROMYCIN [Interacting]
     Active Substance: ERYTHROMYCIN
     Indication: Pneumonia
     Dosage: UNK
     Route: 042
     Dates: start: 20210402, end: 20210407
  4. SUFENTANIL [Interacting]
     Active Substance: SUFENTANIL
     Dosage: UNK
     Route: 042
  5. ESLICARBAZEPINE ACETATE [Interacting]
     Active Substance: ESLICARBAZEPINE ACETATE
     Indication: Epilepsy
     Dosage: 1.5 DF, 1X/DAY
     Route: 048
     Dates: end: 20210410
  6. MIDAZOLAM [Interacting]
     Active Substance: MIDAZOLAM
     Dosage: UNK
     Route: 042

REACTIONS (2)
  - Drug interaction [Recovered/Resolved]
  - Bradycardia [Recovered/Resolved]

NARRATIVE: CASE EVENT DATE: 20210407
